FAERS Safety Report 11453013 (Version 1)
Quarter: 2015Q3

REPORT INFORMATION
  Report Type: Spontaneous
  Country: US (occurrence: US)
  Receive Date: 20150903
  Receipt Date: 20150903
  Transmission Date: 20151125
  Serious: Yes (Hospitalization, Other)
  Sender: FDA-Public Use
  Company Number: US-COREPHARMA LLC-2015COR00183

PATIENT
  Age: 21 Year
  Sex: Male

DRUGS (7)
  1. OXYMORPHONE [Suspect]
     Active Substance: OXYMORPHONE
     Dosage: 10 MG, 1X/DAY
     Route: 065
  2. UNSPECIFIED PRESCRIPTION OPIOIDS [Suspect]
     Active Substance: UNSPECIFIED INGREDIENT
     Dosage: UNK
     Route: 045
  3. OXYCODONE [Suspect]
     Active Substance: OXYCODONE
     Dosage: 60 MG, 1X/DAY
     Route: 065
  4. UNSPECIFIED PRESCRIPTION OPIOIDS [Suspect]
     Active Substance: UNSPECIFIED INGREDIENT
     Route: 048
  5. BUPRENORPHINE-NALOXONE [Suspect]
     Active Substance: BUPRENORPHINE HYDROCHLORIDE\NALOXONE HYDROCHLORIDE
     Dosage: 8MG/2MG
     Route: 060
  6. CANNABIS [Concomitant]
     Active Substance: CANNABIS SATIVA SUBSP. INDICA TOP
     Route: 055
  7. HEROIN [Suspect]
     Active Substance: DIACETYLMORPHINE

REACTIONS (8)
  - Acute kidney injury [Recovered/Resolved]
  - Delirium [Recovered/Resolved]
  - Hallucination [Recovered/Resolved]
  - Drug withdrawal syndrome [Recovered/Resolved]
  - Oesophageal rupture [Recovered/Resolved]
  - Drug abuse [Unknown]
  - Pneumomediastinum [Recovered/Resolved]
  - Rhabdomyolysis [Recovered/Resolved]
